FAERS Safety Report 25755315 (Version 1)
Quarter: 2025Q3

REPORT INFORMATION
  Report Type: Spontaneous
  Country: EU (occurrence: EU)
  Receive Date: 20250903
  Receipt Date: 20250903
  Transmission Date: 20251020
  Serious: Yes (Hospitalization, Other)
  Sender: CHEPLAPHARM
  Company Number: None

PATIENT
  Age: 39 Year
  Sex: Male

DRUGS (8)
  1. BROMAZEPAM [Suspect]
     Active Substance: BROMAZEPAM
  2. CLONAZEPAM [Suspect]
     Active Substance: CLONAZEPAM
  3. OLANZAPINE [Suspect]
     Active Substance: OLANZAPINE
  4. COCAINE [Suspect]
     Active Substance: COCAINE
  5. LYRICA [Suspect]
     Active Substance: PREGABALIN
  6. SUBUTEX [Suspect]
     Active Substance: BUPRENORPHINE HYDROCHLORIDE
  7. OXOMEMAZINE HYDROCHLORIDE [Suspect]
     Active Substance: OXOMEMAZINE HYDROCHLORIDE
  8. TRAMADOL [Suspect]
     Active Substance: TRAMADOL

REACTIONS (3)
  - Altered state of consciousness [Recovered/Resolved]
  - Drug use disorder [Unknown]
  - Road traffic accident [Unknown]

NARRATIVE: CASE EVENT DATE: 20250315
